FAERS Safety Report 17624451 (Version 1)
Quarter: 2020Q2

REPORT INFORMATION
  Report Type: Spontaneous
  Country: CL (occurrence: CL)
  Receive Date: 20200403
  Receipt Date: 20200403
  Transmission Date: 20200713
  Serious: Yes (Other)
  Sender: FDA-Public Use
  Company Number: CL-US-PROVELL PHARMACEUTICALS LLC-9152891

PATIENT

DRUGS (1)
  1. LEVOTHYROXINE. [Suspect]
     Active Substance: LEVOTHYROXINE
     Indication: HYPOTHYROIDISM
     Dosage: HALF TABLET FROM MONDAY TO FRIDAY AND ? TABLET ON SATURDAYS AND SUNDAYS
     Route: 048
     Dates: start: 20200108

REACTIONS (13)
  - Heart rate increased [Recovering/Resolving]
  - Neck pain [Unknown]
  - Nervousness [Recovering/Resolving]
  - Musculoskeletal pain [Unknown]
  - Stress [Not Recovered/Not Resolved]
  - Tri-iodothyronine decreased [Unknown]
  - Headache [Unknown]
  - Anti-thyroid antibody positive [Unknown]
  - Thyroxine free decreased [Unknown]
  - Thyroglobulin increased [Unknown]
  - Syncope [Recovering/Resolving]
  - Tremor [Recovering/Resolving]
  - Blood thyroid stimulating hormone increased [Unknown]

NARRATIVE: CASE EVENT DATE: 2020
